FAERS Safety Report 7381525-6 (Version None)
Quarter: 2011Q1

REPORT INFORMATION
  Report Type: 
  Country: None (occurrence: None)
  Receive Date: 20110329
  Receipt Date: 20110322
  Transmission Date: 20110831
  Serious: Yes (Hospitalization)
  Sender: FDA-Public Use
  Company Number: DK-TEVA-272484ISR

PATIENT
  Age: 72 Year
  Sex: Male

DRUGS (3)
  1. BEVACIZUMAB [Suspect]
     Indication: RECTAL CANCER
     Route: 065
  2. CAPECITABINE [Suspect]
     Indication: RECTAL CANCER
     Route: 065
  3. OXALIPLATIN [Suspect]
     Indication: RECTAL CANCER
     Route: 065

REACTIONS (1)
  - RECTAL PERFORATION [None]
